FAERS Safety Report 9469017 (Version 1)
Quarter: 2013Q3

REPORT INFORMATION
  Report Type: Spontaneous
  Country: US (occurrence: US)
  Receive Date: 20130821
  Receipt Date: 20130821
  Transmission Date: 20140515
  Serious: No
  Sender: FDA-Public Use
  Company Number: US-NOVEN-13US006893

PATIENT
  Age: 56 Year
  Sex: Female

DRUGS (4)
  1. MINIVELLE [Suspect]
     Indication: HOT FLUSH
     Dosage: 0.05 MG, QD
     Route: 062
     Dates: start: 201305
  2. MINIVELLE [Suspect]
     Indication: INSOMNIA
  3. MINIVELLE [Suspect]
     Indication: FEELING ABNORMAL
  4. PRILOSEC                           /00661201/ [Concomitant]
     Indication: DYSPEPSIA
     Route: 048

REACTIONS (4)
  - Muscle spasms [Unknown]
  - Weight increased [Not Recovered/Not Resolved]
  - Metrorrhagia [Unknown]
  - Breast tenderness [Unknown]
